FAERS Safety Report 5069358-7 (Version None)
Quarter: 2006Q3

REPORT INFORMATION
  Report Type: 
  Country: None (occurrence: None)
  Receive Date: 20060731
  Receipt Date: 20060719
  Transmission Date: 20061208
  Serious: Yes (Other)
  Sender: FDA-Public Use
  Company Number: 2006090423

PATIENT
  Age: 46 Year
  Sex: Female
  Weight: 77.1115 kg

DRUGS (2)
  1. RELPAX [Suspect]
     Indication: MIGRAINE
     Dosage: 40 MG AS NECESSARY, ORAL
     Route: 048
     Dates: start: 20060718
  2. CRESTOR [Concomitant]

REACTIONS (3)
  - FEELING ABNORMAL [None]
  - PHARYNGEAL OEDEMA [None]
  - VOMITING [None]
